FAERS Safety Report 9984438 (Version 1)
Quarter: 2014Q1

REPORT INFORMATION
  Report Type: Report from Study
  Country: US (occurrence: US)
  Receive Date: 20140307
  Receipt Date: 20140307
  Transmission Date: 20141002
  Serious: No
  Sender: FDA-Public Use
  Company Number: US-ABBVIE-13P-163-1182496-00

PATIENT
  Age: 50 Year
  Sex: Female
  Weight: 95.34 kg

DRUGS (2)
  1. HUMIRA [Suspect]
     Indication: PSORIASIS
     Route: 058
     Dates: start: 201309
  2. HUMIRA [Suspect]
     Indication: PSORIATIC ARTHROPATHY

REACTIONS (1)
  - Injection site pain [Recovered/Resolved]
